FAERS Safety Report 11702231 (Version 1)
Quarter: 2015Q4

REPORT INFORMATION
  Report Type: Spontaneous
  Country: US (occurrence: US)
  Receive Date: 20151105
  Receipt Date: 20151105
  Transmission Date: 20160304
  Serious: Yes (Hospitalization)
  Sender: FDA-Public Use
  Company Number: US-ASTRAZENECA-2015SF06193

PATIENT
  Sex: Male

DRUGS (1)
  1. BRILINTA [Suspect]
     Active Substance: TICAGRELOR
     Dosage: LOADING DOSE OF 180 MG AND HAD 2 ADDITIONAL DOSES.
     Route: 048

REACTIONS (2)
  - Intentional product misuse [Unknown]
  - Myocardial infarction [Unknown]
